FAERS Safety Report 4596610-1 (Version None)
Quarter: 2005Q1

REPORT INFORMATION
  Report Type: 
  Country: None (occurrence: None)
  Receive Date: 20050228
  Receipt Date: 20050218
  Transmission Date: 20050727
  Serious: Yes (Hospitalization)
  Sender: FDA-Public Use
  Company Number: US-2004-031768

PATIENT
  Age: 40 Year
  Sex: Male
  Weight: 83.9 kg

DRUGS (7)
  1. BETASERON [Suspect]
     Indication: RELAPSING-REMITTING MULTIPLE SCLEROSIS
     Dosage: 8 MIU, EVERY 2D, SUBCUTANEOUS
     Route: 058
     Dates: start: 19980101
  2. KLONOPIN [Concomitant]
  3. NEURONTIN [Concomitant]
  4. PROVIGIL [Concomitant]
  5. COLACE (DOCUSATE SODIUM) [Concomitant]
  6. FLOMAX [Concomitant]
  7. DITROPAN [Concomitant]

REACTIONS (4)
  - ABNORMAL BEHAVIOUR [None]
  - INJECTION SITE URTICARIA [None]
  - PNEUMONIA ASPIRATION [None]
  - URINARY TRACT INFECTION [None]
